FAERS Safety Report 10869210 (Version 1)
Quarter: 2015Q1

REPORT INFORMATION
  Report Type: Spontaneous
  Country: US (occurrence: US)
  Receive Date: 20150225
  Receipt Date: 20150225
  Transmission Date: 20150721
  Serious: No
  Sender: FDA-Public Use
  Company Number: US-009507513-1502USA009571

PATIENT
  Age: 21 Year
  Sex: Female
  Weight: 56.69 kg

DRUGS (1)
  1. NEXPLANON [Suspect]
     Active Substance: ETONOGESTREL
     Indication: CONTRACEPTION
     Dosage: 3 YEARS, LEFT ARM
     Route: 059
     Dates: start: 20140207

REACTIONS (3)
  - Abdominal pain [Unknown]
  - Menorrhagia [Unknown]
  - Back pain [Unknown]

NARRATIVE: CASE EVENT DATE: 201501
